FAERS Safety Report 7787329-4 (Version None)
Quarter: 2011Q3

REPORT INFORMATION
  Report Type: 
  Country: None (occurrence: None)
  Receive Date: 20110929
  Receipt Date: 20110921
  Transmission Date: 20111222
  Serious: Yes (Hospitalization)
  Sender: FDA-Public Use
  Company Number: PHHY2011JP83766

PATIENT
  Age: 26 Year
  Sex: Female

DRUGS (7)
  1. ENTECAVIR [Concomitant]
  2. METHYLPREDNISOLONE [Suspect]
     Dosage: 750 MG/DAY
  3. METHYLPREDNISOLONE [Suspect]
     Dosage: 250 MG/DAY
  4. CYCLOSPORINE [Concomitant]
  5. INTERFERON BETA NOS [Concomitant]
  6. METHYLPREDNISOLONE [Suspect]
     Indication: HEPATITIS B
     Dosage: 1000 MG/DAY
  7. METHYLPREDNISOLONE [Suspect]
     Dosage: 500 MG/DAY

REACTIONS (1)
  - PNEUMATOSIS INTESTINALIS [None]
